FAERS Safety Report 7500601-8 (Version None)
Quarter: 2011Q2

REPORT INFORMATION
  Report Type: 
  Country: None (occurrence: None)
  Receive Date: 20110524
  Receipt Date: 20110519
  Transmission Date: 20111010
  Serious: Yes (Other)
  Sender: FDA-Public Use
  Company Number: US-TEVA-282558USA

PATIENT

DRUGS (1)
  1. FENTANYL CITRATE [Suspect]

REACTIONS (2)
  - BRAIN OPERATION [None]
  - BREAST CANCER [None]
